FAERS Safety Report 7569099-8 (Version None)
Quarter: 2011Q2

REPORT INFORMATION
  Report Type: 
  Country: None (occurrence: None)
  Receive Date: 20110623
  Receipt Date: 20110617
  Transmission Date: 20111010
  Serious: Yes (Other)
  Sender: FDA-Public Use
  Company Number: BR-ABBOTT-11P-020-0733409-00

PATIENT
  Sex: Female
  Weight: 78 kg

DRUGS (4)
  1. DEFLAZACORT [Concomitant]
     Indication: DRUG THERAPY
     Route: 048
     Dates: start: 20070101, end: 20110201
  2. PREDNISONE [Concomitant]
     Indication: DRUG THERAPY
     Route: 048
     Dates: start: 20070101, end: 20110201
  3. HUMIRA [Suspect]
     Indication: RHEUMATOID ARTHRITIS
     Route: 058
     Dates: start: 20110428
  4. LEVOTHYROXINE SODIUM [Concomitant]
     Indication: HYPOTHYROIDISM
     Route: 048
     Dates: start: 19960101

REACTIONS (9)
  - SJOGREN'S SYNDROME [None]
  - OEDEMA PERIPHERAL [None]
  - WEIGHT DECREASED [None]
  - ARTHRITIS [None]
  - GAIT DISTURBANCE [None]
  - LOCAL SWELLING [None]
  - PAIN [None]
  - JOINT SWELLING [None]
  - ARTHROPATHY [None]
